FAERS Safety Report 7435363-6 (Version None)
Quarter: 2011Q2

REPORT INFORMATION
  Report Type: 
  Country: None (occurrence: None)
  Receive Date: 20110425
  Receipt Date: 20110414
  Transmission Date: 20111010
  Serious: Yes (Hospitalization)
  Sender: FDA-Public Use
  Company Number: B0714041A

PATIENT
  Sex: Male
  Weight: 57 kg

DRUGS (14)
  1. ALKERAN [Suspect]
     Indication: CORD BLOOD TRANSPLANT THERAPY
     Dosage: 117MG PER DAY
     Route: 042
     Dates: start: 20100608, end: 20100609
  2. URSO 250 [Concomitant]
     Dosage: 600MG PER DAY
     Route: 048
     Dates: start: 20100601, end: 20100924
  3. RAMELTEON [Concomitant]
     Dosage: .3MG PER DAY
     Route: 042
     Dates: start: 20100605, end: 20100609
  4. FUNGUARD [Concomitant]
     Dosage: 150MG PER DAY
     Route: 042
     Dates: start: 20100601, end: 20100908
  5. PREDONINE [Concomitant]
     Dosage: 10MG PER DAY
     Dates: start: 20100601, end: 20100825
  6. MAGMITT [Concomitant]
     Dosage: 1980MG PER DAY
     Route: 048
     Dates: start: 20100607, end: 20100614
  7. DEPAS [Concomitant]
     Route: 048
     Dates: start: 20100605, end: 20100626
  8. TACROLIMUS HYDRATE [Concomitant]
     Indication: IMMUNOSUPPRESSION
     Dosage: 2MG PER DAY
     Route: 065
     Dates: start: 20100610, end: 20101118
  9. LANSOPRAZOLE [Concomitant]
     Dosage: 15MG PER DAY
     Route: 048
     Dates: start: 20100601, end: 20100924
  10. FLUDARA [Suspect]
     Indication: CORD BLOOD TRANSPLANT THERAPY
     Dosage: 42MG PER DAY
     Route: 042
     Dates: start: 20100605, end: 20100609
  11. MYSLEE [Concomitant]
     Dosage: 10MG PER DAY
     Route: 048
     Dates: start: 20100607, end: 20100729
  12. SOL-MELCORT [Concomitant]
     Dosage: 80MG PER DAY
     Route: 042
     Dates: start: 20100607, end: 20100608
  13. ACIROVEC [Concomitant]
     Dosage: 1000MG PER DAY
     Route: 048
     Dates: start: 20100604, end: 20100715
  14. HUMULIN N [Concomitant]
     Dosage: .02ML PER DAY
     Dates: start: 20100608, end: 20100614

REACTIONS (3)
  - DIARRHOEA [None]
  - PYREXIA [None]
  - FEBRILE NEUTROPENIA [None]
